FAERS Safety Report 23429853 (Version 6)
Quarter: 2024Q2

REPORT INFORMATION
  Report Type: Spontaneous
  Country: JP (occurrence: JP)
  Receive Date: 20240122
  Receipt Date: 20240619
  Transmission Date: 20240716
  Serious: Yes (Death, Life-Threatening, Hospitalization, Other)
  Sender: FDA-Public Use
  Company Number: JP-MSD-M2023-52986

PATIENT
  Age: 63 Year
  Sex: Male

DRUGS (6)
  1. KEYTRUDA [Suspect]
     Active Substance: PEMBROLIZUMAB
     Indication: Clear cell renal cell carcinoma
     Dosage: 200 MILLIGRAM, Q3W
     Route: 041
     Dates: start: 20231128, end: 20240208
  2. LENVATINIB MESYLATE [Suspect]
     Active Substance: LENVATINIB MESYLATE
     Indication: Clear cell renal cell carcinoma
     Dosage: 14 MILLIGRAM, QD
     Route: 048
     Dates: start: 20231128, end: 20231217
  3. LENVATINIB MESYLATE [Suspect]
     Active Substance: LENVATINIB MESYLATE
     Dosage: 10 MILLIGRAM, QD
     Route: 048
     Dates: start: 20231218, end: 202312
  4. LENVATINIB MESYLATE [Suspect]
     Active Substance: LENVATINIB MESYLATE
     Dosage: 10 MILLIGRAM, QD
     Route: 048
     Dates: start: 20231227, end: 20240117
  5. LENVATINIB MESYLATE [Suspect]
     Active Substance: LENVATINIB MESYLATE
     Dosage: 4 MILLIGRAM
     Route: 048
     Dates: start: 20240208, end: 20240223
  6. VANCOMYCIN HYDROCHLORIDE [Suspect]
     Active Substance: VANCOMYCIN HYDROCHLORIDE
     Dosage: UNK
     Route: 065

REACTIONS (25)
  - Palmar-plantar erythrodysaesthesia syndrome [Fatal]
  - Erythema [Fatal]
  - Immune thrombocytopenia [Fatal]
  - Disseminated intravascular coagulation [Fatal]
  - General physical health deterioration [Fatal]
  - Cholecystitis [Recovering/Resolving]
  - Thrombotic thrombocytopenic purpura [Unknown]
  - Intestinal ischaemia [Unknown]
  - Dehydration [Unknown]
  - Pancreatitis acute [Unknown]
  - Mouth haemorrhage [Unknown]
  - Mouth breathing [Unknown]
  - Intestinal dilatation [Unknown]
  - Gastrointestinal motility disorder [Unknown]
  - Blood urea increased [Unknown]
  - Proteinuria [Unknown]
  - Malaise [Recovering/Resolving]
  - Pyrexia [Unknown]
  - Weight decreased [Unknown]
  - Decreased appetite [Unknown]
  - Drug eruption [Unknown]
  - Oral pain [Unknown]
  - Blood pressure decreased [Unknown]
  - Amylase increased [Unknown]
  - Fatigue [Recovering/Resolving]

NARRATIVE: CASE EVENT DATE: 20231201
